FAERS Safety Report 13003197 (Version 2)
Quarter: 2016Q4

REPORT INFORMATION
  Report Type: Spontaneous
  Country: US (occurrence: US)
  Receive Date: 20161206
  Receipt Date: 20161207
  Transmission Date: 20170207
  Serious: Yes (Hospitalization, Other)
  Sender: FDA-Public Use
  Company Number: PHEH2016US030809

PATIENT
  Age: 59 Year
  Sex: Female
  Weight: 72.57 kg

DRUGS (8)
  1. TEGRETOL [Suspect]
     Active Substance: CARBAMAZEPINE
     Indication: PRODUCT USED FOR UNKNOWN INDICATION
     Dosage: UNK
     Route: 065
  2. NEURONTIN [Suspect]
     Active Substance: GABAPENTIN
     Indication: BACK PAIN
     Dosage: UNK
     Route: 065
  3. NAPROXEN. [Suspect]
     Active Substance: NAPROXEN
     Indication: PRODUCT USED FOR UNKNOWN INDICATION
     Dosage: UNK
     Route: 065
  4. DEPAKOTE [Suspect]
     Active Substance: DIVALPROEX SODIUM
     Dosage: UNK (LOW DOSE THAT WAS 2 OF 50 GM 3 TIMES A DAY)
     Route: 065
  5. TOPAMAX [Suspect]
     Active Substance: TOPIRAMATE
     Indication: PRODUCT USED FOR UNKNOWN INDICATION
     Dosage: UNK
     Route: 065
  6. GABAPENTIN. [Suspect]
     Active Substance: GABAPENTIN
     Indication: BACK PAIN
     Dosage: 100 MG, QD
     Route: 048
  7. NEURONTIN [Suspect]
     Active Substance: GABAPENTIN
     Indication: NERVE INJURY
     Dosage: 100 MG, TID (100 MG 2 TO 3 TIMES A DAY, WAS ON 100 THEN ON 300)
     Route: 065
     Dates: start: 2015, end: 2015
  8. DEPAKOTE [Suspect]
     Active Substance: DIVALPROEX SODIUM
     Indication: MANIA
     Dosage: UNK, (2 TABLETS OF 50 GM AND 5 OF 100 GM)
     Route: 065

REACTIONS (12)
  - Intracranial aneurysm [Unknown]
  - Diverticulitis intestinal haemorrhagic [Unknown]
  - Fatigue [Unknown]
  - Back pain [Unknown]
  - Impaired work ability [Unknown]
  - Depression [Unknown]
  - Drug ineffective [Unknown]
  - Neurological symptom [Unknown]
  - Weight increased [Unknown]
  - Loss of consciousness [Recovered/Resolved]
  - Gait disturbance [Unknown]
  - Cardiac disorder [Unknown]

NARRATIVE: CASE EVENT DATE: 2015
